FAERS Safety Report 19493120 (Version 9)
Quarter: 2022Q1

REPORT INFORMATION
  Report Type: Report from Study
  Country: JP (occurrence: JP)
  Receive Date: 20210705
  Receipt Date: 20220318
  Transmission Date: 20220424
  Serious: Yes (Hospitalization, Other)
  Sender: FDA-Public Use
  Company Number: NVSJ2021JP009792

PATIENT
  Age: 14 Year
  Sex: Female
  Weight: 50.2 kg

DRUGS (21)
  1. ILARIS [Suspect]
     Active Substance: CANAKINUMAB
     Indication: Still^s disease
     Dosage: 150 MG
     Route: 058
     Dates: start: 20201029
  2. ILARIS [Suspect]
     Active Substance: CANAKINUMAB
     Dosage: 150 MG
     Route: 058
     Dates: start: 20201126
  3. ILARIS [Suspect]
     Active Substance: CANAKINUMAB
     Dosage: 150 MG
     Route: 058
     Dates: start: 20201224
  4. ILARIS [Suspect]
     Active Substance: CANAKINUMAB
     Dosage: 300 MG
     Route: 058
     Dates: start: 20210121
  5. ILARIS [Suspect]
     Active Substance: CANAKINUMAB
     Dosage: 300 MG
     Route: 058
     Dates: start: 20210218
  6. ILARIS [Suspect]
     Active Substance: CANAKINUMAB
     Dosage: 300 MG
     Route: 058
     Dates: start: 20210316
  7. ILARIS [Suspect]
     Active Substance: CANAKINUMAB
     Dosage: 300 MG
     Route: 058
     Dates: start: 20210413
  8. ILARIS [Suspect]
     Active Substance: CANAKINUMAB
     Dosage: 300 MG
     Route: 058
     Dates: start: 20210511
  9. ILARIS [Suspect]
     Active Substance: CANAKINUMAB
     Dosage: 300 MG
     Route: 058
     Dates: start: 20210608, end: 20210608
  10. METHOTREXATE [Concomitant]
     Active Substance: METHOTREXATE
     Indication: Still^s disease
     Dosage: 2.5 MG, 5 TABLETS ONCE WEEKLY
     Route: 048
     Dates: start: 20180605, end: 20210617
  11. IBUPROFEN [Concomitant]
     Active Substance: IBUPROFEN
     Indication: Still^s disease
     Dosage: 1200 MG
     Route: 048
     Dates: start: 20201029, end: 20210104
  12. DICLOFENAC SODIUM [Concomitant]
     Active Substance: DICLOFENAC SODIUM
     Indication: Still^s disease
     Dosage: 37.5 MG, PRN
     Route: 065
     Dates: start: 201808
  13. DICLOFENAC SODIUM [Concomitant]
     Active Substance: DICLOFENAC SODIUM
     Dosage: 75 MG
     Route: 048
     Dates: start: 20210104, end: 20210608
  14. PREDONINE [Concomitant]
     Active Substance: PREDNISOLONE
     Indication: Juvenile idiopathic arthritis
     Dosage: 30 MG
     Route: 048
     Dates: start: 20171215
  15. PREDONINE [Concomitant]
     Active Substance: PREDNISOLONE
     Dosage: UNK
     Route: 048
  16. PREDNISOLONE [Concomitant]
     Active Substance: PREDNISOLONE
     Indication: Still^s disease
     Dosage: 8 MG
     Route: 048
     Dates: start: 201807
  17. PREDNISOLONE [Concomitant]
     Active Substance: PREDNISOLONE
     Dosage: 7 MG
     Route: 048
     Dates: start: 20201029
  18. FAMOTIDINE [Concomitant]
     Active Substance: FAMOTIDINE
     Indication: Gastritis
     Dosage: 20 MG
     Route: 048
     Dates: start: 201712
  19. FAMOTIDINE [Concomitant]
     Active Substance: FAMOTIDINE
     Dosage: 40 MG
     Route: 048
     Dates: start: 20201029, end: 20210608
  20. FAMOTIDINE [Concomitant]
     Active Substance: FAMOTIDINE
     Dosage: 20 MG
     Route: 048
     Dates: end: 20210617
  21. ACETAMINOPHEN [Concomitant]
     Active Substance: ACETAMINOPHEN
     Indication: Arthralgia
     Dosage: 500 MG, PRN
     Route: 048
     Dates: start: 20200623

REACTIONS (3)
  - Crohn^s disease [Recovering/Resolving]
  - Abdominal pain [Unknown]
  - C-reactive protein increased [Unknown]

NARRATIVE: CASE EVENT DATE: 20210527
